FAERS Safety Report 10522577 (Version 1)
Quarter: 2014Q4

REPORT INFORMATION
  Report Type: Spontaneous
  Country: US (occurrence: None)
  Receive Date: 20141010
  Receipt Date: 20141010
  Transmission Date: 20150528
  Serious: Yes (Hospitalization)
  Sender: FDA-Public Use
  Company Number: AMAG201400368

PATIENT
  Age: 87 Year
  Sex: Male
  Weight: 83 kg

DRUGS (13)
  1. ALDACTONE (POTASSIUM CANRENOATE) [Concomitant]
  2. ASPIRIN (ACETYLSALICYLIC ACID) [Concomitant]
     Active Substance: ASPIRIN
  3. COREG [Concomitant]
     Active Substance: CARVEDILOL
  4. ZYLOPRIM (ALLOPURINOL) [Concomitant]
  5. FERAHEME [Suspect]
     Active Substance: FERUMOXYTOL NON-STOICHIOMETRIC MAGNETITE
     Indication: IRON DEFICIENCY ANAEMIA
     Dosage: SINGLE
     Route: 042
     Dates: start: 20140918, end: 20140918
  6. COUMADIN [Concomitant]
     Active Substance: WARFARIN SODIUM
  7. ISOSORBIDE MONONITRATE (ISOSORBIDE MONONITRATE) [Concomitant]
     Active Substance: ISOSORBIDE MONONITRATE
  8. FLOMAX (MONONITRATE) [Concomitant]
  9. LOSARTAN (LOSARTAN) [Concomitant]
     Active Substance: LOSARTAN
  10. NITROSTAT (GLYCERYL TRINITRATE) [Concomitant]
  11. LASIX [Concomitant]
     Active Substance: FUROSEMIDE
  12. SYNTHROID [Concomitant]
     Active Substance: LEVOTHYROXINE SODIUM
  13. CORDARONE (AMIODARONE HYDROCHLORIDE) [Concomitant]

REACTIONS (1)
  - Investigation [None]

NARRATIVE: CASE EVENT DATE: 201409
